FAERS Safety Report 17851854 (Version 1)
Quarter: 2020Q2

REPORT INFORMATION
  Report Type: Spontaneous
  Country: DE (occurrence: DE)
  Receive Date: 20200602
  Receipt Date: 20200602
  Transmission Date: 20200714
  Serious: Yes (Death)
  Sender: FDA-Public Use
  Company Number: DE-CELLTRION INC.-2020DE022765

PATIENT

DRUGS (1)
  1. TRASTUZUMAB (UNKNOWN) [Suspect]
     Active Substance: TRASTUZUMAB
     Dosage: UNK
     Route: 064

REACTIONS (2)
  - Death neonatal [Fatal]
  - Maternal exposure timing unspecified [Fatal]
